FAERS Safety Report 7041224-7 (Version None)
Quarter: 2010Q3

REPORT INFORMATION
  Report Type: 
  Country: None (occurrence: None)
  Receive Date: 20100929
  Receipt Date: 20100615
  Transmission Date: 20110219
  Serious: No
  Sender: FDA-Public Use
  Company Number: US-WYE-H15687010

PATIENT
  Age: 36 Year
  Sex: Female

DRUGS (1)
  1. PRISTIQ [Suspect]
     Dosage: (50 MG 1X PER 1 DAY) (^CURRENTLY TAKING 1 PRISTIQ QOD, BUT CANNOT SKIP MORE THAN 3 DOSES^) (^INITIAT

REACTIONS (2)
  - DRUG WITHDRAWAL SYNDROME [None]
  - MIGRAINE [None]
